FAERS Safety Report 24344751 (Version 2)
Quarter: 2024Q4

REPORT INFORMATION
  Report Type: Report from Study
  Country: DE (occurrence: DE)
  Receive Date: 20240920
  Receipt Date: 20241211
  Transmission Date: 20250115
  Serious: Yes (Hospitalization)
  Sender: NOVARTIS
  Company Number: DE-002147023-NVSC2024DE135306

PATIENT
  Sex: Male

DRUGS (4)
  1. COSENTYX [Suspect]
     Active Substance: SECUKINUMAB
     Indication: Axial spondyloarthritis
     Dosage: 150 MG, Q4W
     Route: 065
     Dates: start: 20230120, end: 20231010
  2. IBUPROFEN [Concomitant]
     Active Substance: IBUPROFEN
     Indication: Product used for unknown indication
     Dosage: 400 MG (2 DAYS/ WEEK)
     Route: 065
     Dates: start: 20230301
  3. ERELZI [Concomitant]
     Active Substance: ETANERCEPT-SZZS
     Indication: Product used for unknown indication
     Dosage: 50 MG, QW
     Route: 065
     Dates: start: 20231010
  4. HULIO [Concomitant]
     Active Substance: ADALIMUMAB-FKJP
     Indication: Product used for unknown indication
     Dosage: 40 MG
     Route: 065
     Dates: start: 20220829, end: 20230112

REACTIONS (2)
  - Bacterial infection [Recovered/Resolved]
  - Inflammation [Recovered/Resolved]

NARRATIVE: CASE EVENT DATE: 20231027
